FAERS Safety Report 16848053 (Version 1)
Quarter: 2019Q3

REPORT INFORMATION
  Report Type: Report from Study
  Country: GB (occurrence: GB)
  Receive Date: 20190925
  Receipt Date: 20190925
  Transmission Date: 20191005
  Serious: Yes (Hospitalization)
  Sender: FDA-Public Use
  Company Number: GB-SAMSUNG BIOEPIS-SB-2019-27450

PATIENT
  Age: 61 Year
  Sex: Male

DRUGS (1)
  1. IMRALDI [Suspect]
     Active Substance: ADALIMUMAB
     Indication: PSORIASIS
     Route: 058
     Dates: start: 20190903

REACTIONS (2)
  - Salivary gland enlargement [Unknown]
  - Sialoadenitis [Not Recovered/Not Resolved]

NARRATIVE: CASE EVENT DATE: 20190904
